FAERS Safety Report 4426157-4 (Version None)
Quarter: 2004Q3

REPORT INFORMATION
  Report Type: 
  Country: None (occurrence: None)
  Receive Date: 20040811
  Receipt Date: 20040726
  Transmission Date: 20050211
  Serious: Yes (Other)
  Sender: FDA-Public Use
  Company Number: USA040567755

PATIENT
  Age: 57 Year
  Sex: Female
  Weight: 60 kg

DRUGS (11)
  1. HUMATROPE [Suspect]
     Indication: HYPOPITUITARISM
     Dosage: 0.3 MG DAY
     Dates: start: 20040216, end: 20040425
  2. FOSAMAX [Concomitant]
  3. CALCIUM [Concomitant]
  4. PREMARIN [Concomitant]
  5. XANAX (ALPRAZOLAM DUM) [Concomitant]
  6. TRAZODONE [Concomitant]
  7. PROZAC [Concomitant]
  8. HYDROCHLOROTHIAZIDE [Concomitant]
  9. VALTREX [Concomitant]
  10. RELAFEN [Concomitant]
  11. PERCOCET [Concomitant]

REACTIONS (4)
  - BONE DISORDER [None]
  - BREAST CANCER IN SITU [None]
  - BREAST PAIN [None]
  - FATIGUE [None]
